FAERS Safety Report 6610183-0 (Version None)
Quarter: 2010Q1

REPORT INFORMATION
  Report Type: 
  Country: None (occurrence: None)
  Receive Date: 20100302
  Receipt Date: 20100224
  Transmission Date: 20100710
  Serious: Yes (Death)
  Sender: FDA-Public Use
  Company Number: KR-ELI_LILLY_AND_COMPANY-KR201002006907

PATIENT
  Sex: Male
  Weight: 74.8 kg

DRUGS (4)
  1. PEMETREXED [Suspect]
     Indication: NON-SMALL CELL LUNG CANCER
     Dosage: 500 MG/M2, DAY ONE
     Route: 042
     Dates: start: 20080309
  2. FOLIC ACID [Concomitant]
     Indication: PROPHYLAXIS
     Dosage: 1 MG, DAILY (1/D)
     Route: 048
     Dates: start: 20080301, end: 20080608
  3. VITAMIN B-12 [Concomitant]
     Indication: PROPHYLAXIS
     Dosage: 1000 UG, DAILY (1/D)
     Route: 030
     Dates: start: 20080301, end: 20080422
  4. DEXAMETHASONE [Concomitant]
     Indication: PROPHYLAXIS
     Dosage: 5 MG, DAILY (1/D)
     Route: 042
     Dates: start: 20080309, end: 20080422

REACTIONS (2)
  - ACUTE RESPIRATORY FAILURE [None]
  - DYSPNOEA [None]
